FAERS Safety Report 17055016 (Version 1)
Quarter: 2019Q4

REPORT INFORMATION
  Report Type: Spontaneous
  Country: US (occurrence: US)
  Receive Date: 20191120
  Receipt Date: 20191120
  Transmission Date: 20200122
  Serious: No
  Sender: FDA-Public Use
  Company Number: US-SA-2019SA319641

PATIENT
  Age: 59 Year
  Sex: Female
  Weight: 67.12 kg

DRUGS (17)
  1. NEXAVAR [Interacting]
     Active Substance: SORAFENIB
     Dosage: UNK
     Dates: start: 20190830, end: 20191024
  2. ALEVE [Concomitant]
     Active Substance: NAPROXEN SODIUM
  3. MAGNESIUM [Concomitant]
     Active Substance: MAGNESIUM
  4. OMEGA-3 FATTY ACIDS [Concomitant]
     Active Substance: OMEGA-3 FATTY ACIDS
  5. SUMATRIPTAN SUCCINATE. [Concomitant]
     Active Substance: SUMATRIPTAN SUCCINATE
  6. ELIQUIS [Concomitant]
     Active Substance: APIXABAN
  7. PREDNISONE. [Concomitant]
     Active Substance: PREDNISONE
  8. RESTASIS [Concomitant]
     Active Substance: CYCLOSPORINE
  9. VITAMIN D3 [Concomitant]
     Active Substance: CHOLECALCIFEROL
  10. LIVALO [Concomitant]
     Active Substance: PITAVASTATIN CALCIUM
  11. COENZYME Q10 [Concomitant]
     Active Substance: UBIDECARENONE
  12. PANTOPRAZOLE SODIUM. [Concomitant]
     Active Substance: PANTOPRAZOLE SODIUM
  13. PROCHLORPERAZINE MALEATE. [Concomitant]
     Active Substance: PROCHLORPERAZINE MALEATE
  14. PRALUENT [Suspect]
     Active Substance: ALIROCUMAB
     Dosage: 75 MG, QOW
     Route: 058
  15. VALSARTAN + HCTZ [Concomitant]
     Active Substance: HYDROCHLOROTHIAZIDE\VALSARTAN
  16. POTASSIUM CHLORIDE. [Concomitant]
     Active Substance: POTASSIUM CHLORIDE
  17. METOPROLOL TARTRATE. [Concomitant]
     Active Substance: METOPROLOL TARTRATE

REACTIONS (2)
  - Drug interaction [Recovering/Resolving]
  - Hepatic enzyme increased [Recovering/Resolving]

NARRATIVE: CASE EVENT DATE: 2019
